FAERS Safety Report 25516948 (Version 1)
Quarter: 2025Q3

REPORT INFORMATION
  Report Type: Spontaneous
  Country: CA (occurrence: CA)
  Receive Date: 20250704
  Receipt Date: 20250704
  Transmission Date: 20251021
  Serious: Yes (Other)
  Sender: AMGEN
  Company Number: CA-AMGEN-CANSP2025125320

PATIENT
  Age: 35 Year
  Sex: Male

DRUGS (10)
  1. RITUXIMAB [Suspect]
     Active Substance: RITUXIMAB
     Indication: Burkitt^s lymphoma stage IV
     Route: 065
  2. CYCLOPHOSPHAMIDE [Concomitant]
     Active Substance: CYCLOPHOSPHAMIDE
  3. VINCRISTINE [Concomitant]
     Active Substance: VINCRISTINE
  4. DOXORUBICIN [Concomitant]
     Active Substance: DOXORUBICIN
  5. METHOTREXATE [Concomitant]
     Active Substance: METHOTREXATE
  6. IFOSFAMIDE [Concomitant]
     Active Substance: IFOSFAMIDE
  7. ETOPOSIDE [Concomitant]
     Active Substance: ETOPOSIDE
  8. CYTARABINE [Concomitant]
     Active Substance: CYTARABINE
  9. METHYLPREDNISOLONE [Concomitant]
     Active Substance: METHYLPREDNISOLONE
  10. CISPLATIN [Concomitant]
     Active Substance: CISPLATIN

REACTIONS (3)
  - Burkitt^s lymphoma stage IV [Unknown]
  - Burkitt^s lymphoma recurrent [Unknown]
  - Central nervous system lymphoma [Unknown]
